FAERS Safety Report 8506964-9 (Version None)
Quarter: 2012Q3

REPORT INFORMATION
  Report Type: 
  Country: None (occurrence: None)
  Receive Date: 20120703
  Receipt Date: 20120622
  Transmission Date: 20120928
  Serious: Yes (Hospitalization)
  Sender: FDA-Public Use
  Company Number: 2012SP005867

PATIENT
  Age: 30 Year
  Sex: Female
  Weight: 86.1834 kg

DRUGS (1)
  1. NUVARING [Suspect]
     Indication: CONTRACEPTION
     Dates: start: 20070101, end: 20090101

REACTIONS (15)
  - ESCHERICHIA URINARY TRACT INFECTION [None]
  - PULMONARY EMBOLISM [None]
  - MUSCLE STRAIN [None]
  - ANAEMIA [None]
  - INTERNATIONAL NORMALISED RATIO INCREASED [None]
  - MUSCLE RUPTURE [None]
  - DEEP VEIN THROMBOSIS [None]
  - GAIT DISTURBANCE [None]
  - BLOOD FIBRINOGEN INCREASED [None]
  - HYPERLIPIDAEMIA [None]
  - PROTHROMBIN TIME PROLONGED [None]
  - THROMBIN TIME PROLONGED [None]
  - MUSCLE HAEMORRHAGE [None]
  - THERAPEUTIC RESPONSE DECREASED [None]
  - NEPHROLITHIASIS [None]
